FAERS Safety Report 12162704 (Version 1)
Quarter: 2016Q1

REPORT INFORMATION
  Report Type: Spontaneous
  Country: US (occurrence: None)
  Receive Date: 20160308
  Receipt Date: 20160308
  Transmission Date: 20160526
  Serious: No
  Sender: FDA-Public Use
  Company Number: None

PATIENT
  Age: 45 Year
  Sex: Male

DRUGS (2)
  1. HUMULIN R [Suspect]
     Active Substance: INSULIN HUMAN
  2. HUMULIN N [Suspect]
     Active Substance: INSULIN HUMAN

REACTIONS (8)
  - Disturbance in attention [None]
  - Thinking abnormal [None]
  - Blood glucose decreased [None]
  - Hyperhidrosis [None]
  - Tremor [None]
  - Gait disturbance [None]
  - Heart rate increased [None]
  - Dizziness [None]
